FAERS Safety Report 5196158-X (Version None)
Quarter: 2007Q1

REPORT INFORMATION
  Report Type: 
  Country: None (occurrence: None)
  Receive Date: 20070102
  Receipt Date: 20061219
  Transmission Date: 20070707
  Serious: Yes (Hospitalization)
  Sender: FDA-Public Use
  Company Number: US-ELI_LILLY_AND_COMPANY-US200610001885

PATIENT
  Age: 37 Year
  Sex: Female

DRUGS (2)
  1. CYMBALTA [Suspect]
     Indication: PAIN
     Dosage: 60 MG, UNK
     Dates: start: 20060301, end: 20060901
  2. HORMONES AND RELATED AGENTS [Concomitant]
     Dates: end: 20060101

REACTIONS (13)
  - ABDOMINAL PAIN [None]
  - BLISTER [None]
  - DRY SKIN [None]
  - FUNGAL INFECTION [None]
  - FUNGAL SKIN INFECTION [None]
  - HOT FLUSH [None]
  - LYME DISEASE [None]
  - NIGHT SWEATS [None]
  - OEDEMA PERIPHERAL [None]
  - PAIN [None]
  - RASH [None]
  - SKIN EXFOLIATION [None]
  - SKIN WARM [None]
